FAERS Safety Report 8072251-9 (Version None)
Quarter: 2012Q1

REPORT INFORMATION
  Report Type: 
  Country: None (occurrence: None)
  Receive Date: 20120126
  Receipt Date: 20120118
  Transmission Date: 20120608
  Serious: No
  Sender: FDA-Public Use
  Company Number: US-PFIZER INC-2012014732

PATIENT
  Sex: Female
  Weight: 110.66 kg

DRUGS (10)
  1. HYDROCHLOROTHIAZIDE [Concomitant]
     Dosage: UNK
  2. SIMVASTATIN [Concomitant]
     Dosage: UNK
  3. NITROSTAT [Suspect]
     Indication: CHEST DISCOMFORT
     Dosage: 0.4 MG, AS NEEDED
     Route: 048
     Dates: start: 20111101
  4. METFORMIN [Concomitant]
     Indication: DIABETES MELLITUS
     Dosage: UNK
  5. SERTRALINE [Concomitant]
     Dosage: UNK
  6. AMLODIPINE [Concomitant]
     Dosage: UNK
  7. PLAVIX [Concomitant]
     Dosage: UNK
  8. SYNTHROID [Concomitant]
     Dosage: UNK
  9. VERAPAMIL [Concomitant]
     Dosage: UNK
  10. CARVEDILOL [Concomitant]
     Indication: HYPERTENSION
     Dosage: UNK

REACTIONS (4)
  - PARAESTHESIA ORAL [None]
  - DIZZINESS [None]
  - NAUSEA [None]
  - DRUG EFFECT DELAYED [None]
